FAERS Safety Report 4845385-7 (Version None)
Quarter: 2005Q4

REPORT INFORMATION
  Report Type: 
  Country: None (occurrence: None)
  Receive Date: 20051205
  Receipt Date: 20051124
  Transmission Date: 20060501
  Serious: Yes (Death, Hospitalization)
  Sender: FDA-Public Use
  Company Number: JP-BRISTOL-MYERS SQUIBB COMPANY-13204003

PATIENT
  Age: 64 Year
  Sex: Male

DRUGS (2)
  1. ENDOXAN [Suspect]
     Indication: VASCULITIS
  2. PREDNISOLONE [Concomitant]

REACTIONS (1)
  - BRAIN ABSCESS [None]
